FAERS Safety Report 5049607-1 (Version None)
Quarter: 2006Q2

REPORT INFORMATION
  Report Type: 
  Country: None (occurrence: None)
  Receive Date: 20060613
  Receipt Date: 20060421
  Transmission Date: 20061013
  Serious: Yes (Hospitalization)
  Sender: FDA-Public Use
  Company Number: 2006-00949

PATIENT
  Age: 41 Year
  Sex: Female
  Weight: 78.5 kg

DRUGS (7)
  1. VELCADE [Suspect]
     Indication: HODGKIN'S DISEASE
     Dosage: 2.80 MG. INTRAVENOUS
     Route: 042
     Dates: start: 20060320, end: 20060413
  2. MORPHINE SULFATE [Concomitant]
  3. ACETAMINOPHEN [Concomitant]
  4. CELEXA [Concomitant]
  5. KYTRIL [Concomitant]
  6. ZOFRAN [Concomitant]
  7. DEXAMETHASONE [Concomitant]

REACTIONS (5)
  - CONSTIPATION [None]
  - DEPRESSION [None]
  - FATIGUE [None]
  - INTESTINAL OBSTRUCTION [None]
  - NAUSEA [None]
